FAERS Safety Report 12805431 (Version 1)
Quarter: 2016Q4

REPORT INFORMATION
  Report Type: Spontaneous
  Country: US (occurrence: US)
  Receive Date: 20161004
  Receipt Date: 20161004
  Transmission Date: 20170207
  Serious: Yes (Hospitalization, Other)
  Sender: FDA-Public Use
  Company Number: US-B.I. PHARMACEUTICALS,INC./RIDGEFIELD-2016-BI-063727

PATIENT
  Age: 57 Year
  Sex: Male

DRUGS (1)
  1. SPIRIVA [Suspect]
     Active Substance: TIOTROPIUM BROMIDE MONOHYDRATE
     Indication: CHRONIC OBSTRUCTIVE PULMONARY DISEASE
     Dosage: DAILY DOSE :18MCG ONCE AS REQUIRED
     Route: 055
     Dates: start: 2014, end: 201512

REACTIONS (6)
  - Blood pressure increased [Not Recovered/Not Resolved]
  - Asthenia [Not Recovered/Not Resolved]
  - Dyspnoea [Not Recovered/Not Resolved]
  - Decreased activity [Not Recovered/Not Resolved]
  - Road traffic accident [Recovered/Resolved]
  - Neck injury [Not Recovered/Not Resolved]

NARRATIVE: CASE EVENT DATE: 20160213
